FAERS Safety Report 7152960-6 (Version None)
Quarter: 2010Q4

REPORT INFORMATION
  Report Type: 
  Country: None (occurrence: None)
  Receive Date: 20101209
  Receipt Date: 20101209
  Transmission Date: 20110411
  Serious: Yes (Life-Threatening, Hospitalization, Disabling)
  Sender: FDA-Public Use
  Company Number: None

PATIENT
  Age: 49 Year
  Sex: Female
  Weight: 90.7194 kg

DRUGS (1)
  1. SEASONIQUE [Suspect]
     Indication: MENORRHAGIA
     Dosage: 4/DAY TAPERING DOSE
     Dates: start: 20100301, end: 20100531

REACTIONS (9)
  - ANKLE FRACTURE [None]
  - DEEP VEIN THROMBOSIS [None]
  - FALL [None]
  - HAEMATOMA [None]
  - INTRA-ABDOMINAL HAEMATOMA [None]
  - NAUSEA [None]
  - OVERDOSE [None]
  - PAIN IN EXTREMITY [None]
  - VOMITING [None]
